FAERS Safety Report 17770179 (Version 1)
Quarter: 2020Q2

REPORT INFORMATION
  Report Type: Spontaneous
  Country: TW (occurrence: TW)
  Receive Date: 20200512
  Receipt Date: 20200512
  Transmission Date: 20200714
  Serious: Yes (Other)
  Sender: FDA-Public Use
  Company Number: TW-SHIRE-TW202015891

PATIENT

DRUGS (3)
  1. FOSRENOL [Suspect]
     Active Substance: LANTHANUM CARBONATE
     Dosage: 750 MILLIGRAM, 1X/DAY:QD
     Route: 048
  2. FOSRENOL [Suspect]
     Active Substance: LANTHANUM CARBONATE
     Dosage: 1000 MILLIGRAM, 1X/DAY:QD
     Route: 048
  3. FOSRENOL [Suspect]
     Active Substance: LANTHANUM CARBONATE
     Indication: HYPERPHOSPHATAEMIA
     Dosage: 750 MILLIGRAM, 1X/DAY:QD
     Route: 048

REACTIONS (4)
  - Hypotension [Unknown]
  - Dizziness [Unknown]
  - Intentional product use issue [Unknown]
  - Syncope [Unknown]
